FAERS Safety Report 8021469-X (Version None)
Quarter: 2011Q4

REPORT INFORMATION
  Report Type: 
  Country: None (occurrence: None)
  Receive Date: 20111229
  Receipt Date: 20111213
  Transmission Date: 20120403
  Serious: Yes (Hospitalization)
  Sender: FDA-Public Use
  Company Number: FK201103006

PATIENT
  Age: 57 Year
  Sex: Female

DRUGS (4)
  1. LEUCOVORIN CALCIUM [Suspect]
     Indication: COLON CANCER METASTATIC
  2. IRINOTECAN HCL [Suspect]
     Indication: COLON CANCER METASTATIC
  3. FLUOROURACIL [Suspect]
     Indication: COLON CANCER METASTATIC
  4. BEVACIZUMAB (BEVACIZUMAB) (BEVACIZUMAB) [Suspect]
     Indication: COLON CANCER METASTATIC

REACTIONS (15)
  - EXTRAVASATION [None]
  - ULCER [None]
  - MEDICATION ERROR [None]
  - LUNG ABSCESS [None]
  - VENOUS THROMBOSIS [None]
  - BODY TEMPERATURE INCREASED [None]
  - UPPER AIRWAY NECROSIS [None]
  - VENOUS PRESSURE INCREASED [None]
  - DRUG LEVEL INCREASED [None]
  - DEVICE OCCLUSION [None]
  - CHEST PAIN [None]
  - HAEMOPTYSIS [None]
  - ADHESION [None]
  - C-REACTIVE PROTEIN INCREASED [None]
  - RESPIRATORY TRACT MALFORMATION [None]
